FAERS Safety Report 14131845 (Version 1)
Quarter: 2017Q4

REPORT INFORMATION
  Report Type: Spontaneous
  Country: ES (occurrence: ES)
  Receive Date: 20171026
  Receipt Date: 20171026
  Transmission Date: 20180321
  Serious: Yes (Other)
  Sender: FDA-Public Use
  Company Number: ES-JNJFOC-20171028912

PATIENT
  Age: 57 Year
  Sex: Female

DRUGS (2)
  1. REMICADE [Suspect]
     Active Substance: INFLIXIMAB
     Indication: PSORIATIC ARTHROPATHY
     Route: 042
     Dates: start: 20120517, end: 20150504
  2. ARAVA [Suspect]
     Active Substance: LEFLUNOMIDE
     Indication: PSORIATIC ARTHROPATHY
     Route: 048
     Dates: end: 20150504

REACTIONS (2)
  - Gamma-glutamyltransferase increased [Unknown]
  - Androgenetic alopecia [Unknown]

NARRATIVE: CASE EVENT DATE: 2015
